FAERS Safety Report 17053436 (Version 1)
Quarter: 2019Q4

REPORT INFORMATION
  Report Type: Spontaneous
  Country: US (occurrence: US)
  Receive Date: 20191120
  Receipt Date: 20191120
  Transmission Date: 20200122
  Serious: Yes (Hospitalization)
  Sender: FDA-Public Use
  Company Number: None

PATIENT
  Age: 41 Year
  Sex: Female
  Weight: 74.25 kg

DRUGS (3)
  1. BUPROPION XL 150 MG [Suspect]
     Active Substance: BUPROPION
  2. BUPROPION XL 300 MG [Suspect]
     Active Substance: BUPROPION
     Indication: DEPRESSION
     Dosage: ?          QUANTITY:1 TABLET(S);?
     Route: 048
     Dates: start: 20191006, end: 20191119
  3. BUPROPION XL 300 MG [Suspect]
     Active Substance: BUPROPION
     Indication: BIPOLAR II DISORDER
     Dosage: ?          QUANTITY:1 TABLET(S);?
     Route: 048
     Dates: start: 20191006, end: 20191119

REACTIONS (3)
  - Screaming [None]
  - Seizure [None]
  - Drooling [None]

NARRATIVE: CASE EVENT DATE: 20191119
